FAERS Safety Report 10332765 (Version 1)
Quarter: 2014Q3

REPORT INFORMATION
  Report Type: Report from Study
  Country: US (occurrence: US)
  Receive Date: 20140722
  Receipt Date: 20140722
  Transmission Date: 20150326
  Serious: Yes (Life-Threatening)
  Sender: FDA-Public Use
  Company Number: PHEH2014US014517

PATIENT

DRUGS (2)
  1. FANAPT [Suspect]
     Active Substance: ILOPERIDONE
     Dosage: 12 MG, UNK
     Route: 048
  2. FANAPT [Suspect]
     Active Substance: ILOPERIDONE
     Dosage: (DOSE INCREASED)

REACTIONS (2)
  - Hallucination [Recovering/Resolving]
  - Suicidal ideation [Recovering/Resolving]
